FAERS Safety Report 8249760-2 (Version None)
Quarter: 2012Q2

REPORT INFORMATION
  Report Type: 
  Country: None (occurrence: None)
  Receive Date: 20120402
  Receipt Date: 20120323
  Transmission Date: 20120825
  Serious: Yes (Hospitalization)
  Sender: FDA-Public Use
  Company Number: PHHY2012AU025641

PATIENT
  Sex: Female

DRUGS (2)
  1. CLOZARIL [Suspect]
     Dosage: 200 MG, UNK
     Dates: end: 20120202
  2. CLOZARIL [Suspect]
     Dosage: 200 MG, UNK
     Dates: start: 20111130, end: 20120103

REACTIONS (9)
  - SEDATION [None]
  - ANTIPSYCHOTIC DRUG LEVEL BELOW THERAPEUTIC [None]
  - DRUG INEFFECTIVE [None]
  - DECREASED APPETITE [None]
  - CONSTIPATION [None]
  - FLAT AFFECT [None]
  - ASTHENIA [None]
  - LETHARGY [None]
  - FATIGUE [None]
